FAERS Safety Report 21144289 (Version 1)
Quarter: 2022Q3

REPORT INFORMATION
  Report Type: Spontaneous
  Country: US (occurrence: None)
  Receive Date: 20220728
  Receipt Date: 20220728
  Transmission Date: 20221027
  Serious: Yes (Disabling)
  Sender: FDA-Public Use
  Company Number: None

PATIENT
  Age: 79 Year
  Sex: Female
  Weight: 86.18 kg

DRUGS (21)
  1. EYLEA [Suspect]
     Active Substance: AFLIBERCEPT
  2. BKFT [Concomitant]
  3. METOPROLOL [Concomitant]
     Active Substance: METOPROLOL
  4. DEXILANT [Concomitant]
     Active Substance: DEXLANSOPRAZOLE
  5. JANUVIA [Concomitant]
     Active Substance: SITAGLIPTIN PHOSPHATE
  6. TYLENOL [Concomitant]
     Active Substance: ACETAMINOPHEN
  7. MINERALS\VITAMINS [Concomitant]
     Active Substance: MINERALS\VITAMINS
  8. LOSARTAN [Concomitant]
     Active Substance: LOSARTAN
  9. CRESTOR [Concomitant]
     Active Substance: ROSUVASTATIN CALCIUM
  10. RANITIDINE [Concomitant]
     Active Substance: RANITIDINE
  11. PLAVIX [Concomitant]
     Active Substance: CLOPIDOGREL BISULFATE
  12. ALLEGRA [Concomitant]
     Active Substance: FEXOFENADINE HYDROCHLORIDE
  13. FUROSEMIDE [Concomitant]
     Active Substance: FUROSEMIDE
  14. MIRALAX [Concomitant]
     Active Substance: POLYETHYLENE GLYCOL 3350
  15. FLONASE [Concomitant]
     Active Substance: FLUTICASONE PROPIONATE
  16. LOMOTIL [Concomitant]
     Active Substance: ATROPINE SULFATE\DIPHENOXYLATE HYDROCHLORIDE
  17. GLIMEPIRIDE [Concomitant]
     Active Substance: GLIMEPIRIDE
  18. MYRBETRIQ [Concomitant]
     Active Substance: MIRABEGRON
  19. LATANOPROST [Concomitant]
     Active Substance: LATANOPROST
  20. VITAMIN D2 [Concomitant]
     Active Substance: ERGOCALCIFEROL
  21. MINERALS\VITAMINS [Concomitant]
     Active Substance: MINERALS\VITAMINS

REACTIONS (4)
  - Retinal haemorrhage [None]
  - Blindness unilateral [None]
  - Loss of personal independence in daily activities [None]
  - Impaired self-care [None]

NARRATIVE: CASE EVENT DATE: 20220515
